FAERS Safety Report 19525947 (Version 1)
Quarter: 2021Q3

REPORT INFORMATION
  Report Type: Spontaneous
  Country: US (occurrence: US)
  Receive Date: 20210713
  Receipt Date: 20210713
  Transmission Date: 20211014
  Serious: Yes (Life-Threatening, Disabling, Other)
  Sender: FDA-Public Use
  Company Number: None

PATIENT
  Age: 12 Year
  Sex: Female
  Weight: 56.25 kg

DRUGS (10)
  1. SINGULAIR [Suspect]
     Active Substance: MONTELUKAST SODIUM
     Indication: MULTIPLE ALLERGIES
     Dosage: ?          QUANTITY:1 TABLET(S);OTHER FREQUENCY:AS NEEDED/DAILY;?
     Route: 048
     Dates: start: 20090101, end: 20201030
  2. THORNE [Concomitant]
  3. LEXAPRO [Concomitant]
     Active Substance: ESCITALOPRAM OXALATE
  4. LEVALBITEROL [Concomitant]
  5. SINGULAIR [Suspect]
     Active Substance: MONTELUKAST SODIUM
     Indication: ASTHMA
     Dosage: ?          QUANTITY:1 TABLET(S);OTHER FREQUENCY:AS NEEDED/DAILY;?
     Route: 048
     Dates: start: 20090101, end: 20201030
  6. VITAMIN D3 [Concomitant]
     Active Substance: CHOLECALCIFEROL
  7. ALLEGRA [Concomitant]
     Active Substance: FEXOFENADINE HYDROCHLORIDE
  8. YAZ BIRTH CONTROL [Concomitant]
  9. VITAMIN C [Concomitant]
     Active Substance: ASCORBIC ACID
  10. OMEGA 3 [Concomitant]
     Active Substance: OMEGA-3 FATTY ACIDS

REACTIONS (8)
  - Anxiety [None]
  - Abnormal behaviour [None]
  - Anger [None]
  - Educational problem [None]
  - Suicidal ideation [None]
  - Delusion [None]
  - Agitation [None]
  - Suicide attempt [None]

NARRATIVE: CASE EVENT DATE: 20140101
